FAERS Safety Report 6909305-3 (Version None)
Quarter: 2010Q3

REPORT INFORMATION
  Report Type: 
  Country: None (occurrence: None)
  Receive Date: 20100805
  Receipt Date: 20100802
  Transmission Date: 20110219
  Serious: Yes (Other)
  Sender: FDA-Public Use
  Company Number: RU-GENZYME-CERZ-1001421

PATIENT

DRUGS (1)
  1. CEREZYME [Suspect]
     Indication: GAUCHER'S DISEASE
     Dosage: 45 U/KG, Q2W
     Route: 042
     Dates: start: 20060201

REACTIONS (2)
  - DEVICE RELATED INFECTION [None]
  - FISTULA [None]
